FAERS Safety Report 7522548-3 (Version None)
Quarter: 2011Q2

REPORT INFORMATION
  Report Type: 
  Country: None (occurrence: None)
  Receive Date: 20110603
  Receipt Date: 20110530
  Transmission Date: 20111010
  Serious: Yes (Life-Threatening, Other)
  Sender: FDA-Public Use
  Company Number: JP-PFIZER INC-2011078607

PATIENT
  Age: 73 Year
  Sex: Female
  Weight: 42.8 kg

DRUGS (1)
  1. SUTENT [Suspect]
     Indication: RENAL CELL CARCINOMA
     Dosage: 37.5 MG, 1X/DAY
     Route: 048
     Dates: start: 20110311, end: 20110328

REACTIONS (5)
  - PLEURAL EFFUSION [None]
  - DECREASED APPETITE [None]
  - TOXIC ENCEPHALOPATHY [None]
  - HYPOTHYROIDISM [None]
  - MUSCULAR WEAKNESS [None]
